FAERS Safety Report 11268958 (Version 1)
Quarter: 2015Q3

REPORT INFORMATION
  Report Type: Spontaneous
  Country: US (occurrence: US)
  Receive Date: 20150714
  Receipt Date: 20150714
  Transmission Date: 20151125
  Serious: No
  Sender: FDA-Public Use
  Company Number: US-ORION CORPORATION ORION PHARMA-SPIR2015-0003

PATIENT
  Age: 83 Year
  Sex: Female

DRUGS (1)
  1. SPIRONOLACTONE. [Suspect]
     Active Substance: SPIRONOLACTONE
     Indication: NEPHROPROTECTIVE THERAPY
     Route: 065

REACTIONS (1)
  - Drug hypersensitivity [Recovered/Resolved]
